FAERS Safety Report 6475201-1 (Version None)
Quarter: 2009Q4

REPORT INFORMATION
  Report Type: 
  Country: None (occurrence: None)
  Receive Date: 20091123
  Receipt Date: 20090929
  Transmission Date: 20100525
  Serious: No
  Sender: FDA-Public Use
  Company Number: 8052736

PATIENT
  Age: 62 Year
  Sex: Male
  Weight: 79.3 kg

DRUGS (6)
  1. CIMZIA [Suspect]
     Indication: CROHN'S DISEASE
     Dosage: 400 MG SC
     Route: 058
     Dates: start: 20090914
  2. PENTASA [Concomitant]
  3. WELCHOL [Concomitant]
  4. ENTOCORT EC [Concomitant]
  5. ACIPHEX [Concomitant]
  6. DIPHENOXYLATE HCL + ATROPINE SULFATE [Concomitant]

REACTIONS (5)
  - ASTHENIA [None]
  - BURNING SENSATION [None]
  - MEMORY IMPAIRMENT [None]
  - MUSCLE SPASMS [None]
  - PAIN IN EXTREMITY [None]
